FAERS Safety Report 7640504-1 (Version None)
Quarter: 2011Q3

REPORT INFORMATION
  Report Type: 
  Country: None (occurrence: None)
  Receive Date: 20110728
  Receipt Date: 20110718
  Transmission Date: 20111222
  Serious: No
  Sender: FDA-Public Use
  Company Number: US-BIOGENIDEC-2011BI026917

PATIENT
  Age: 66 Year
  Sex: Female

DRUGS (1)
  1. TYSABRI [Suspect]
     Indication: MULTIPLE SCLEROSIS
     Route: 042
     Dates: start: 20070510

REACTIONS (8)
  - MOBILITY DECREASED [None]
  - IMPAIRED DRIVING ABILITY [None]
  - JOINT SWELLING [None]
  - ARTHRITIS [None]
  - GAIT DISTURBANCE [None]
  - ARTHRALGIA [None]
  - DEPRESSION [None]
  - FATIGUE [None]
